FAERS Safety Report 5931798-9 (Version None)
Quarter: 2008Q4

REPORT INFORMATION
  Report Type: 
  Country: None (occurrence: None)
  Receive Date: 20081021
  Receipt Date: 20081008
  Transmission Date: 20090506
  Serious: Yes (Hospitalization)
  Sender: FDA-Public Use
  Company Number: POMP-1000309

PATIENT
  Age: 4 Year
  Sex: Female
  Weight: 17.3 kg

DRUGS (3)
  1. MYOZYME [Suspect]
     Indication: GLYCOGEN STORAGE DISEASE TYPE II
     Dosage: 20 MG/KG, Q2W, INTRAVENOUS; 40 MG/KG, Q2W
     Route: 042
     Dates: start: 20040426, end: 20071101
  2. MYOZYME [Suspect]
     Indication: GLYCOGEN STORAGE DISEASE TYPE II
     Dosage: 20 MG/KG, Q2W, INTRAVENOUS; 40 MG/KG, Q2W
     Route: 042
     Dates: start: 20071203
  3. KEPPRA [Concomitant]

REACTIONS (5)
  - BLOOD PRESSURE FLUCTUATION [None]
  - DRUG EFFECT DECREASED [None]
  - PYREXIA [None]
  - RESPIRATORY RATE INCREASED [None]
  - SUPRAVENTRICULAR TACHYCARDIA [None]
